FAERS Safety Report 5144585-9 (Version None)
Quarter: 2006Q4

REPORT INFORMATION
  Report Type: 
  Country: None (occurrence: None)
  Receive Date: 20061031
  Receipt Date: 20061018
  Transmission Date: 20070319
  Serious: Yes (Other)
  Sender: FDA-Public Use
  Company Number: 2006112956

PATIENT
  Sex: Female

DRUGS (6)
  1. LYRICA [Suspect]
     Indication: NEURALGIA
     Dosage: 300 MG (150 MG, 2 IN 1 D), ORAL
     Route: 048
     Dates: start: 20060101
  2. NEXIUM [Concomitant]
  3. TOPROL-XL [Concomitant]
  4. DANTRIUM [Concomitant]
  5. CYMBALTA [Concomitant]
  6. PLAVIX [Concomitant]

REACTIONS (3)
  - ABNORMAL DREAMS [None]
  - MENTAL DISORDER [None]
  - THINKING ABNORMAL [None]
